FAERS Safety Report 26028841 (Version 1)
Quarter: 2025Q4

REPORT INFORMATION
  Report Type: Spontaneous
  Country: US (occurrence: US)
  Receive Date: 20251112
  Receipt Date: 20251112
  Transmission Date: 20260117
  Serious: No
  Sender: Haleon PLC
  Company Number: US-HALEON-2273400

PATIENT

DRUGS (2)
  1. NEXIUM [Suspect]
     Active Substance: ESOMEPRAZOLE MAGNESIUM
     Indication: Product used for unknown indication
  2. NEXIUM [Suspect]
     Active Substance: ESOMEPRAZOLE MAGNESIUM
     Indication: Product used for unknown indication

REACTIONS (1)
  - Drug effect less than expected [Unknown]
